FAERS Safety Report 6371668-8 (Version None)
Quarter: 2009Q3

REPORT INFORMATION
  Report Type: 
  Country: None (occurrence: None)
  Receive Date: 20090923
  Receipt Date: 20081020
  Transmission Date: 20100115
  Serious: Yes (Other)
  Sender: FDA-Public Use
  Company Number: US-ASTRAZENECA-2008UW08102

PATIENT
  Age: 410 Month
  Sex: Female
  Weight: 107.5 kg

DRUGS (4)
  1. SEROQUEL [Suspect]
     Indication: DEPRESSION
     Dosage: 200MG, 300MG, 600MG
     Route: 048
     Dates: start: 20051001, end: 20060301
  2. ZYPREXA [Concomitant]
     Dates: start: 20040101
  3. ELAVIL [Concomitant]
     Dates: start: 20060101
  4. PAXIL [Concomitant]
     Dates: start: 20060101

REACTIONS (10)
  - BLOOD URINE PRESENT [None]
  - CARDIAC DISORDER [None]
  - CHEST PAIN [None]
  - FIBROMYALGIA [None]
  - HEART RATE IRREGULAR [None]
  - HYPERTENSION [None]
  - NEPHROLITHIASIS [None]
  - PANCREATITIS [None]
  - TYPE 2 DIABETES MELLITUS [None]
  - URINARY TRACT INFECTION [None]
